FAERS Safety Report 6959816-X (Version None)
Quarter: 2010Q3

REPORT INFORMATION
  Report Type: 
  Country: None (occurrence: None)
  Receive Date: 20100901
  Receipt Date: 20100824
  Transmission Date: 20110219
  Serious: No
  Sender: FDA-Public Use
  Company Number: US-BIOGENIDEC-2010BI029752

PATIENT
  Sex: Female

DRUGS (2)
  1. TYSABRI [Suspect]
     Indication: MULTIPLE SCLEROSIS
     Route: 042
  2. TYSABRI [Suspect]
     Route: 042
     Dates: start: 20090226

REACTIONS (6)
  - ANIMAL SCRATCH [None]
  - FALL [None]
  - FATIGUE [None]
  - MOOD SWINGS [None]
  - PARAESTHESIA [None]
  - STRESS [None]
